FAERS Safety Report 9537203 (Version 1)
Quarter: 2013Q3

REPORT INFORMATION
  Report Type: Spontaneous
  Country: US (occurrence: US)
  Receive Date: 20130919
  Receipt Date: 20130919
  Transmission Date: 20140515
  Serious: No
  Sender: FDA-Public Use
  Company Number: US-PURDUE-USA-2013-0097307

PATIENT
  Age: 43 Year
  Sex: Female

DRUGS (2)
  1. INTERMEZZO [Suspect]
     Indication: INSOMNIA
     Dosage: 1.75 MG, UNK
  2. TEMAZEPAM [Concomitant]
     Indication: INSOMNIA
     Dosage: 30 MG, UNK

REACTIONS (3)
  - Glossodynia [Unknown]
  - Tongue blistering [Unknown]
  - Chemical injury [Unknown]
